FAERS Safety Report 15384326 (Version 1)
Quarter: 2018Q3

REPORT INFORMATION
  Report Type: Report from Study
  Country: None (occurrence: TR)
  Receive Date: 20180914
  Receipt Date: 20180914
  Transmission Date: 20181010
  Serious: Yes (Other)
  Sender: FDA-Public Use
  Company Number: TR-BAUSCH-BL-2018-024408

PATIENT
  Age: 15 Year
  Sex: Female

DRUGS (1)
  1. HYDROCORTISONE. [Suspect]
     Active Substance: HYDROCORTISONE
     Indication: 17-ALPHA-HYDROXYLASE DEFICIENCY
     Route: 065

REACTIONS (2)
  - Osteoporosis [Unknown]
  - Condition aggravated [Unknown]
